FAERS Safety Report 19106709 (Version 1)
Quarter: 2021Q2

REPORT INFORMATION
  Report Type: Spontaneous
  Country: US (occurrence: US)
  Receive Date: 20210407
  Receipt Date: 20210407
  Transmission Date: 20210717
  Serious: No
  Sender: FDA-Public Use
  Company Number: None

PATIENT
  Age: 95 Year
  Sex: Male
  Weight: 77.67 kg

DRUGS (14)
  1. BROVANA [Concomitant]
     Active Substance: ARFORMOTEROL TARTRATE
  2. ACIDOPHILUS [Concomitant]
     Active Substance: LACTOBACILLUS ACIDOPHILUS
  3. MELOXICAM. [Concomitant]
     Active Substance: MELOXICAM
  4. STOOL SOFTENER/LAXATIVE [Concomitant]
  5. ABIRATERONE. [Suspect]
     Active Substance: ABIRATERONE ACETATE
     Indication: PROSTATE CANCER
     Route: 048
     Dates: start: 20201006
  6. TROSPIUM [Concomitant]
     Active Substance: TROSPIUM
  7. CALCIUM 600+D [Concomitant]
     Active Substance: CALCIUM\VITAMIN D
  8. COLACE [Concomitant]
     Active Substance: DOCUSATE SODIUM
  9. CARDURA [Concomitant]
     Active Substance: DOXAZOSIN MESYLATE
  10. NORCO [Concomitant]
     Active Substance: ACETAMINOPHEN\HYDROCODONE BITARTRATE
  11. TAMSULOSIN [Concomitant]
     Active Substance: TAMSULOSIN
  12. FINASTERIDE. [Concomitant]
     Active Substance: FINASTERIDE
  13. OMEPRAZOLE. [Concomitant]
     Active Substance: OMEPRAZOLE
  14. LISINOPRIL. [Concomitant]
     Active Substance: LISINOPRIL

REACTIONS (1)
  - Drug ineffective [None]

NARRATIVE: CASE EVENT DATE: 20210407
